FAERS Safety Report 7297444-X (Version None)
Quarter: 2011Q1

REPORT INFORMATION
  Report Type: 
  Country: None (occurrence: None)
  Receive Date: 20110216
  Receipt Date: 20110203
  Transmission Date: 20110831
  Serious: Yes (Hospitalization, Other)
  Sender: FDA-Public Use
  Company Number: US-ACTELION-A-US2011-44108

PATIENT

DRUGS (19)
  1. CARDIZEM [Concomitant]
  2. NEPHROCAPS [Concomitant]
  3. REGLAN [Concomitant]
  4. REVATIO [Concomitant]
  5. AMBIEN [Concomitant]
  6. CITALOPRAM [Concomitant]
  7. PROTONIX [Concomitant]
  8. TRACLEER [Suspect]
     Indication: PULMONARY ARTERIAL HYPERTENSION
     Dosage: 62.5 MG, BID
     Route: 048
     Dates: start: 20101223, end: 20110203
  9. TRACLEER [Suspect]
     Dosage: 62.5 MG, BID
     Route: 048
     Dates: start: 20100511, end: 20100610
  10. TRACLEER [Suspect]
     Dosage: 125 MG, BID
     Route: 048
     Dates: start: 20100611, end: 20101201
  11. COLACE [Concomitant]
  12. TESTOSTERONE [Concomitant]
  13. OXYCODONE [Concomitant]
  14. CATAPRES [Concomitant]
  15. TRACLEER [Suspect]
     Dosage: 125 MG, BID
     Route: 048
     Dates: start: 20101201, end: 20101201
  16. CAPOTEN [Concomitant]
  17. PHOSLO [Concomitant]
  18. SYNTHROID [Concomitant]
  19. DULCOLAX [Concomitant]

REACTIONS (7)
  - PNEUMONIA [None]
  - DYSPNOEA [None]
  - ALANINE AMINOTRANSFERASE INCREASED [None]
  - LIVER FUNCTION TEST ABNORMAL [None]
  - ASPARTATE AMINOTRANSFERASE INCREASED [None]
  - BLOOD ALKALINE PHOSPHATASE INCREASED [None]
  - BLOOD BILIRUBIN INCREASED [None]
